FAERS Safety Report 23802146 (Version 5)
Quarter: 2024Q3

REPORT INFORMATION
  Report Type: Spontaneous
  Country: US (occurrence: US)
  Receive Date: 20240501
  Receipt Date: 20240829
  Transmission Date: 20241017
  Serious: No
  Sender: BRISTOL MYERS SQUIBB
  Company Number: US-BRISTOL-MYERS SQUIBB COMPANY-2024-067789

PATIENT
  Age: 71 Year
  Sex: Male
  Weight: 69.85 kg

DRUGS (3)
  1. POMALYST [Suspect]
     Active Substance: POMALIDOMIDE
     Indication: Plasma cell myeloma
     Route: 048
     Dates: start: 20240120
  2. XPOVIO [Concomitant]
     Active Substance: SELINEXOR
     Indication: Plasma cell myeloma
     Dosage: TOOK DOSE ONE DAY LATE
     Route: 048
     Dates: start: 20240120
  3. ONDANSETRON [Concomitant]
     Active Substance: ONDANSETRON
     Indication: Product used for unknown indication

REACTIONS (10)
  - Dizziness [Not Recovered/Not Resolved]
  - Brain fog [Recovering/Resolving]
  - Peripheral swelling [Unknown]
  - Muscle spasms [Unknown]
  - Gait disturbance [Unknown]
  - Disturbance in attention [Unknown]
  - Respiratory tract infection [Not Recovered/Not Resolved]
  - Constipation [Recovered/Resolved]
  - Product distribution issue [Unknown]
  - Therapy interrupted [Unknown]
